FAERS Safety Report 6034434-9 (Version None)
Quarter: 2009Q1

REPORT INFORMATION
  Report Type: 
  Country: None (occurrence: None)
  Receive Date: 20090112
  Receipt Date: 20090107
  Transmission Date: 20090719
  Serious: Yes (Other)
  Sender: FDA-Public Use
  Company Number: B0552656A

PATIENT
  Age: 33 Year
  Sex: Female
  Weight: 66.9 kg

DRUGS (2)
  1. CLENIL [Suspect]
     Indication: ASTHMA
     Route: 055
     Dates: start: 20081127, end: 20081210
  2. VENTOLIN [Concomitant]
     Indication: ASTHMA
     Route: 055
     Dates: start: 19910101

REACTIONS (2)
  - CHEST DISCOMFORT [None]
  - WHEEZING [None]
